FAERS Safety Report 4577383-5 (Version None)
Quarter: 2005Q1

REPORT INFORMATION
  Report Type: 
  Country: None (occurrence: None)
  Receive Date: 20050210
  Receipt Date: 20050128
  Transmission Date: 20050727
  Serious: Yes (Other)
  Sender: FDA-Public Use
  Company Number: AU-GLAXOSMITHKLINE-B0370706A

PATIENT
  Age: 21 Year
  Sex: Female

DRUGS (1)
  1. IMIGRAN [Suspect]
     Indication: MIGRAINE
     Dosage: 1U SINGLE DOSE
     Route: 058

REACTIONS (3)
  - AFFECT LABILITY [None]
  - HALLUCINATION, VISUAL [None]
  - NIGHTMARE [None]
